FAERS Safety Report 5403828-4 (Version None)
Quarter: 2007Q3

REPORT INFORMATION
  Report Type: 
  Country: None (occurrence: None)
  Receive Date: 20070802
  Receipt Date: 20070723
  Transmission Date: 20080115
  Serious: Yes (Hospitalization)
  Sender: FDA-Public Use
  Company Number: US-BAXTER-2007BH006538

PATIENT
  Age: 50 Year
  Sex: Male

DRUGS (4)
  1. CEFAZOLIN SODIUM [Suspect]
     Indication: PROPHYLAXIS
     Route: 042
  2. LOVENOX [Concomitant]
     Indication: DEEP VEIN THROMBOSIS
     Dosage: DOSE UNIT:UNKNOWN
     Route: 042
  3. MORPHINE SULFATE [Concomitant]
     Indication: ANALGESIA
     Dosage: DOSE UNIT:UNKNOWN
     Route: 042
  4. ACETAMINOPHEN AND OXYCODONE HCL [Concomitant]
     Indication: ANALGESIA
     Dosage: DOSE UNIT:UNKNOWN
     Route: 048

REACTIONS (1)
  - HAEMOLYTIC ANAEMIA [None]
